FAERS Safety Report 9185026 (Version 2)
Quarter: 2013Q3

REPORT INFORMATION
  Report Type: Spontaneous
  Country: US (occurrence: US)
  Receive Date: 20130325
  Receipt Date: 20130808
  Transmission Date: 20140515
  Serious: Yes (Hospitalization, Other)
  Sender: FDA-Public Use
  Company Number: US-BAYER-2013-035143

PATIENT
  Age: 51 Year
  Sex: Female
  Weight: 51 kg

DRUGS (12)
  1. YASMIN [Suspect]
  2. YAZ [Suspect]
  3. GIANVI [Suspect]
  4. SYNTHROID [Concomitant]
  5. PROZAC [Concomitant]
  6. PRILOSEC [Concomitant]
  7. AMBIEN [Concomitant]
  8. ZOLPIDEM TARTRATE [Concomitant]
     Dosage: 10 MG, UNK
  9. LEVOTHYROXINE [Concomitant]
     Dosage: 150 MCG/24HR, UNK
  10. OMEPRAZOLE [Concomitant]
     Dosage: 20 MG, UNK
  11. FLUOXETINE HCL [Concomitant]
     Dosage: 20 MG, UNK
  12. MOTRIN [Concomitant]
     Dosage: 800 MG, BID

REACTIONS (2)
  - Pulmonary embolism [None]
  - Cholelithiasis [None]
